FAERS Safety Report 6870875-5 (Version None)
Quarter: 2010Q3

REPORT INFORMATION
  Report Type: 
  Country: None (occurrence: None)
  Receive Date: 20100723
  Receipt Date: 20100712
  Transmission Date: 20110219
  Serious: Yes (Hospitalization)
  Sender: FDA-Public Use
  Company Number: PHHY2010JP38963

PATIENT
  Sex: Male
  Weight: 89 kg

DRUGS (3)
  1. DIOVAN [Suspect]
     Indication: HYPERTENSION
     Dosage: 40MG DAILY
     Route: 048
     Dates: start: 20100405, end: 20100511
  2. DIOVAN [Suspect]
     Dosage: 80MG DAILY
     Route: 048
     Dates: start: 20100512, end: 20100609
  3. MAINTATE [Concomitant]
     Indication: HYPERTENSION
     Dosage: 2.5 MG
     Route: 048
     Dates: start: 20100323, end: 20100705

REACTIONS (5)
  - BLOOD CREATINE PHOSPHOKINASE INCREASED [None]
  - HEPATIC FUNCTION ABNORMAL [None]
  - HYPERTENSION [None]
  - MYALGIA [None]
  - RHABDOMYOLYSIS [None]
